FAERS Safety Report 24560921 (Version 1)
Quarter: 2024Q4

REPORT INFORMATION
  Report Type: Spontaneous
  Country: US (occurrence: US)
  Receive Date: 20241029
  Receipt Date: 20241029
  Transmission Date: 20250115
  Serious: No
  Sender: TORRENT PHARMA INC.
  Company Number: US-TORRENT-00013812

PATIENT

DRUGS (1)
  1. TRAZODONE [Suspect]
     Active Substance: TRAZODONE HYDROCHLORIDE
     Indication: Insomnia
     Dosage: TRAZODONE 50MG
     Route: 065

REACTIONS (3)
  - Electric shock sensation [Unknown]
  - Drug withdrawal syndrome [Unknown]
  - Drug ineffective [Unknown]
